FAERS Safety Report 12189221 (Version 2)
Quarter: 2016Q1

REPORT INFORMATION
  Report Type: Spontaneous
  Country: US (occurrence: US)
  Receive Date: 20160317
  Receipt Date: 20160330
  Transmission Date: 20160526
  Serious: Yes (Hospitalization, Other)
  Sender: FDA-Public Use
  Company Number: US-TAKEDA-2016MPI001839

PATIENT
  Age: 69 Year
  Sex: Female
  Weight: 111 kg

DRUGS (1)
  1. VELCADE [Suspect]
     Active Substance: BORTEZOMIB
     Indication: PLASMA CELL MYELOMA
     Dosage: 1.3 MG/M2, UNK
     Route: 058
     Dates: start: 20151201

REACTIONS (11)
  - Endometrial disorder [Unknown]
  - Hypotension [Recovered/Resolved]
  - Syncope [Unknown]
  - Renal mass [Unknown]
  - Haematuria [Unknown]
  - Pancytopenia [Recovering/Resolving]
  - Fatigue [Unknown]
  - Dehydration [Recovered/Resolved]
  - Pulmonary embolism [Unknown]
  - Acute kidney injury [Recovered/Resolved]
  - Dyspnoea [Unknown]

NARRATIVE: CASE EVENT DATE: 20160122
